FAERS Safety Report 6509516-5 (Version None)
Quarter: 2009Q4

REPORT INFORMATION
  Report Type: 
  Country: None (occurrence: None)
  Receive Date: 20091222
  Receipt Date: 20091119
  Transmission Date: 20100525
  Serious: No
  Sender: FDA-Public Use
  Company Number: US-BAYER-200930596NA

PATIENT
  Age: 35 Year
  Sex: Female
  Weight: 50 kg

DRUGS (1)
  1. ULTRAVIST 300 [Suspect]
     Indication: NECK PAIN
     Dosage: AS USED: 97 ML  UNIT DOSE: 150 ML
     Route: 042
     Dates: start: 20090814, end: 20090814

REACTIONS (4)
  - CHILLS [None]
  - NASAL CONGESTION [None]
  - NERVOUSNESS [None]
  - URTICARIA [None]
